FAERS Safety Report 4528971-3 (Version None)
Quarter: 2004Q4

REPORT INFORMATION
  Report Type: 
  Country: None (occurrence: None)
  Receive Date: 20041214
  Receipt Date: 20041202
  Transmission Date: 20050328
  Serious: Yes (Hospitalization)
  Sender: FDA-Public Use
  Company Number: 2004080055

PATIENT
  Age: 68 Year
  Sex: Female

DRUGS (2)
  1. CETIRIZINE (TABLETS) (CETIRIZINE) [Suspect]
     Indication: PRURITUS
     Dosage: ORAL
     Route: 048
     Dates: start: 20030918, end: 20030922
  2. CLARITHROMYCIN [Suspect]
     Indication: LYME DISEASE
     Dosage: 1 GRAM (1 GRAM, 1 IN 1 D), ORAL
     Route: 048
     Dates: start: 20030908, end: 20030918

REACTIONS (1)
  - ERYTHEMA MULTIFORME [None]
